FAERS Safety Report 10545676 (Version 1)
Quarter: 2014Q4

REPORT INFORMATION
  Report Type: Spontaneous
  Country: US (occurrence: US)
  Receive Date: 20141027
  Receipt Date: 20141027
  Transmission Date: 20150529
  Serious: Yes (Life-Threatening, Other)
  Sender: FDA-Public Use
  Company Number: US-ASTELLAS-2014US012629

PATIENT
  Age: 7 Decade
  Sex: Female

DRUGS (1)
  1. LEXISCAN [Suspect]
     Active Substance: REGADENOSON
     Indication: CARDIAC STRESS TEST
     Dosage: UNK, TOTAL DOSE
     Route: 042

REACTIONS (2)
  - Cardiac arrest [Unknown]
  - Seizure [Unknown]

NARRATIVE: CASE EVENT DATE: 2014
